FAERS Safety Report 5425537-8 (Version None)
Quarter: 2007Q3

REPORT INFORMATION
  Report Type: 
  Country: None (occurrence: None)
  Receive Date: 20070824
  Receipt Date: 20070813
  Transmission Date: 20080115
  Serious: Yes (Life-Threatening, Hospitalization)
  Sender: FDA-Public Use
  Company Number: US-PFIZER INC-2007051989

PATIENT
  Sex: Male
  Weight: 80 kg

DRUGS (13)
  1. SUTENT [Suspect]
     Indication: RENAL CELL CARCINOMA STAGE UNSPECIFIED
     Route: 048
     Dates: start: 20070329, end: 20070424
  2. ASPIRIN [Concomitant]
     Dosage: TEXT:1 TABLET-FREQ:DAILY
     Route: 048
  3. CENTRUM SILVER [Concomitant]
     Dosage: TEXT:1-FREQ:DAILY
     Route: 048
     Dates: start: 20070328
  4. PACERONE [Concomitant]
     Dosage: TEXT:1 TABLET-FREQ:DAILY
     Route: 048
     Dates: start: 20070328
  5. SENNA [Concomitant]
     Dosage: TEXT:1-FREQ:DAILY
     Route: 048
     Dates: start: 20070425
  6. PROTONIX [Concomitant]
     Route: 048
     Dates: start: 20070425
  7. VITAMIN B6 [Concomitant]
     Route: 048
     Dates: start: 20070425
  8. VITAMIN B-12 [Concomitant]
     Route: 048
     Dates: start: 20070425
  9. ACETAMINOPHEN [Concomitant]
     Route: 048
  10. HYDROCODONE BITARTRATE [Concomitant]
     Route: 048
     Dates: start: 20070216
  11. BETALGIL [Concomitant]
     Route: 048
  12. DOCUSATE SODIUM [Concomitant]
     Route: 048
     Dates: start: 20070216
  13. PSYLLIUM HYDROPHILIC MUCILLOID [Concomitant]
     Route: 048

REACTIONS (9)
  - ASTHENIA [None]
  - CONSTIPATION [None]
  - DEHYDRATION [None]
  - HAEMATOCRIT DECREASED [None]
  - HAEMOGLOBIN ABNORMAL [None]
  - MUCOSAL INFLAMMATION [None]
  - NEUROPATHY [None]
  - THROMBOCYTOPENIA [None]
  - WHITE BLOOD CELL COUNT ABNORMAL [None]
